FAERS Safety Report 5006801-3 (Version None)
Quarter: 2006Q2

REPORT INFORMATION
  Report Type: 
  Country: None (occurrence: None)
  Receive Date: 20060516
  Receipt Date: 20060503
  Transmission Date: 20061013
  Serious: Yes (Other)
  Sender: FDA-Public Use
  Company Number: 2006BH009330

PATIENT
  Age: 52 Year
  Sex: Female

DRUGS (1)
  1. ADENOSINE SYRINGE (ADENOSINE) [Suspect]
     Indication: CARDIOVERSION
     Dosage: 12 MG; IV
     Route: 042

REACTIONS (3)
  - CARDIAC PROCEDURE COMPLICATION [None]
  - NODAL ARRHYTHMIA [None]
  - PULMONARY OEDEMA [None]
